FAERS Safety Report 18086083 (Version 3)
Quarter: 2020Q3

REPORT INFORMATION
  Report Type: Report from Study
  Country: None (occurrence: GR)
  Receive Date: 20200729
  Receipt Date: 20200811
  Transmission Date: 20201103
  Serious: Yes (Hospitalization)
  Sender: FDA-Public Use
  Company Number: GR-ABBVIE-20K-066-3501610-00

PATIENT
  Age: 49 Year
  Sex: Female
  Weight: 60 kg

DRUGS (2)
  1. DUODOPA [Suspect]
     Active Substance: CARBIDOPA\LEVODOPA
     Indication: PARKINSON^S DISEASE
     Dosage: MORNING DOSE: 6.5ML; CONTINUOUS RATE: 8ML/H; EXTRA DOSE: 2.5ML (24H USE OF THE PUMP)
     Route: 050
     Dates: start: 20200711, end: 20200727
  2. DUODOPA [Suspect]
     Active Substance: CARBIDOPA\LEVODOPA
     Dosage: MORNING DOSE: 6.5ML; CONTINUOUS RATE: 5ML/H; EXTRA DOSE: 2.5ML?(24HUSE OF THE DRUG)
     Route: 050
     Dates: start: 20200729

REACTIONS (7)
  - Flatulence [Unknown]
  - Stoma site discharge [Not Recovered/Not Resolved]
  - Peritonitis [Unknown]
  - Gastrointestinal disorder [Unknown]
  - Ileus [Unknown]
  - Faecaloma [Unknown]
  - Intestinal strangulation [Unknown]

NARRATIVE: CASE EVENT DATE: 202007
